FAERS Safety Report 4277808-9 (Version None)
Quarter: 2004Q1

REPORT INFORMATION
  Report Type: 
  Country: None (occurrence: None)
  Receive Date: 20040121
  Receipt Date: 20040108
  Transmission Date: 20041129
  Serious: Yes (Other)
  Sender: FDA-Public Use
  Company Number: 2003124810

PATIENT
  Age: 67 Year
  Sex: Male

DRUGS (7)
  1. NORVASC [Suspect]
     Indication: HYPERTENSION
     Dosage: 5 MG (DAILY); ORAL
     Route: 048
     Dates: start: 19950101
  2. SORTIS (ATORVASTATIN) (ATORVASTATIN) [Suspect]
     Indication: CORONARY ARTERY DISEASE
     Dosage: 10 MG (DAILY); ORAL
     Route: 048
     Dates: start: 20031001
  3. PRAVASTATIN [Suspect]
     Indication: CORONARY ARTERY DISEASE
     Dosage: 20 MG (UNKNOWN); ORAL
     Route: 048
     Dates: start: 20020101
  4. BETA BLOCKING AGENTS [Concomitant]
  5. INSULIN [Concomitant]
  6. HMG COA REDUCTASE INHIBITORS [Concomitant]
  7. SIMVASTATIN [Concomitant]

REACTIONS (3)
  - BLOOD CREATINE PHOSPHOKINASE INCREASED [None]
  - MYALGIA [None]
  - MYOGLOBIN BLOOD INCREASED [None]
